FAERS Safety Report 10743537 (Version 2)
Quarter: 2015Q1

REPORT INFORMATION
  Report Type: Report from Study
  Country: US (occurrence: US)
  Receive Date: 20150128
  Receipt Date: 20150206
  Transmission Date: 20150721
  Serious: Yes (Hospitalization)
  Sender: FDA-Public Use
  Company Number: US-ACTELION-A-US2014-110592

PATIENT
  Age: 81 Year
  Sex: Female

DRUGS (20)
  1. MACITENTAN [Suspect]
     Active Substance: MACITENTAN
     Indication: PULMONARY ARTERIAL HYPERTENSION
     Dosage: 10 MG, QD
     Route: 048
     Dates: start: 201411
  2. LIDEX [Concomitant]
     Active Substance: FLUOCINONIDE
     Dosage: 0.05%, APPLY TOPICALLY, BID
     Route: 061
  3. PROZAC [Concomitant]
     Active Substance: FLUOXETINE HYDROCHLORIDE
     Dosage: 10 MG, QD
     Route: 048
  4. MULTIVITAMIN [Concomitant]
     Active Substance: VITAMINS
     Dosage: 1 CAPSULE, QD
     Route: 048
  5. PRAVACHOL [Concomitant]
     Active Substance: PRAVASTATIN SODIUM
     Dosage: 40 MG, QPM
     Route: 048
  6. SYNTHROID [Concomitant]
     Active Substance: LEVOTHYROXINE SODIUM
     Dosage: 137 MCG, QD
     Route: 048
  7. FENTANYL DURA [Concomitant]
     Dosage: UNK, EVERY OTHER 3 DAY
  8. TYVASO [Concomitant]
     Active Substance: TREPROSTINIL
     Dosage: UNK, QID
     Route: 055
  9. MELATONIN [Concomitant]
     Active Substance: MELATONIN
     Dosage: 3 MG, AT BEDTIME, PRN
     Route: 048
  10. AMBIEN [Concomitant]
     Active Substance: ZOLPIDEM TARTRATE
     Dosage: 10 MG, QPM, PRN
     Route: 048
  11. VESICARE [Concomitant]
     Active Substance: SOLIFENACIN SUCCINATE
     Dosage: 10 MG, PRN
     Route: 048
  12. NEURONTIN [Concomitant]
     Active Substance: GABAPENTIN
     Dosage: 600 MG, BID
     Route: 048
  13. NITROGLYCERIN. [Concomitant]
     Active Substance: NITROGLYCERIN
     Dosage: 0.4 MG, PRN
     Route: 060
  14. DESYREL [Concomitant]
     Active Substance: TRAZODONE HYDROCHLORIDE
     Dosage: 25 MG, QPM
     Route: 048
  15. LASIX [Concomitant]
     Active Substance: FUROSEMIDE
     Dosage: 20 MG, QD
     Route: 048
  16. OXYGEN. [Concomitant]
     Active Substance: OXYGEN
     Route: 045
  17. FOSAMAX [Concomitant]
     Active Substance: ALENDRONATE SODIUM
     Dosage: 70 MG, Q1WEEK
     Route: 048
  18. ASPIRIN. [Concomitant]
     Active Substance: ASPIRIN
     Dosage: 81 MG, BID
     Route: 048
  19. LOPRESSOR [Concomitant]
     Active Substance: METOPROLOL TARTRATE
     Dosage: 50 MG, BID
     Route: 048
  20. PRILOSEC [Concomitant]
     Active Substance: OMEPRAZOLE MAGNESIUM
     Dosage: 20 MG, QD
     Route: 048

REACTIONS (20)
  - Troponin increased [Unknown]
  - Rales [Recovered/Resolved]
  - Hypertensive emergency [Recovered/Resolved]
  - Coronary arterial stent insertion [Unknown]
  - Wheezing [Recovered/Resolved]
  - Oedema peripheral [Recovered/Resolved]
  - Back pain [Unknown]
  - Chest pain [Unknown]
  - Leukocytosis [Recovered/Resolved]
  - Cardiac failure congestive [Unknown]
  - Coronary artery stenosis [Unknown]
  - Acute myocardial infarction [Unknown]
  - Hypoxia [Recovered/Resolved]
  - Chronic obstructive pulmonary disease [Recovered/Resolved]
  - Headache [Unknown]
  - Acute pulmonary oedema [Unknown]
  - Diastolic dysfunction [Recovered/Resolved]
  - Dyspnoea [Recovered/Resolved]
  - Bronchitis [Unknown]
  - Acute respiratory failure [Recovered/Resolved]

NARRATIVE: CASE EVENT DATE: 20141128
